FAERS Safety Report 8846763 (Version 3)
Quarter: 2012Q4

REPORT INFORMATION
  Report Type: 
  Country: US (occurrence: None)
  Receive Date: 20121017
  Receipt Date: 20121119
  Transmission Date: 20130627
  Serious: Yes (Hospitalization)
  Sender: FDA-Public Use
  Company Number: None

PATIENT
  Age: 75 Year
  Sex: Female
  Weight: 59.4 kg

DRUGS (2)
  1. METHYLPREDNISOLONE [Suspect]
  2. STEROID INJECTION N/A NEW ENGLAND COMPOUNDING [Suspect]

REACTIONS (4)
  - Headache [None]
  - Vomiting [None]
  - Meningitis fungal [None]
  - Product contamination [None]
